FAERS Safety Report 23677417 (Version 1)
Quarter: 2024Q1

REPORT INFORMATION
  Report Type: Spontaneous
  Country: US (occurrence: US)
  Receive Date: 20240327
  Receipt Date: 20240327
  Transmission Date: 20240410
  Serious: No
  Sender: FDA-Public Use
  Company Number: US-TEVA-VS-3151879

PATIENT
  Age: 73 Year
  Sex: Female

DRUGS (2)
  1. CLONAZEPAM [Suspect]
     Active Substance: CLONAZEPAM
     Indication: Anxiety
     Dosage: TIME INTERVAL: 0.33333333 DAYS
     Route: 065
  2. HUMIRA [Concomitant]
     Active Substance: ADALIMUMAB
     Route: 065

REACTIONS (7)
  - Inappropriate schedule of product administration [Unknown]
  - Panic attack [Unknown]
  - Anxiety [Unknown]
  - Nightmare [Unknown]
  - Hypomania [Unknown]
  - Anxiety [Unknown]
  - Eosinophil count abnormal [Unknown]
